FAERS Safety Report 9490405 (Version 1)
Quarter: 2013Q3

REPORT INFORMATION
  Report Type: Spontaneous
  Country: US (occurrence: None)
  Receive Date: 20130827
  Receipt Date: 20130827
  Transmission Date: 20140515
  Serious: Yes (Life-Threatening, Hospitalization, Disabling, Other)
  Sender: FDA-Public Use
  Company Number: None

PATIENT
  Age: 74 Year
  Sex: Male
  Weight: 175 kg

DRUGS (11)
  1. XARELTO [Suspect]
     Indication: THROMBOSIS PROPHYLAXIS
     Route: 048
     Dates: start: 20130708, end: 20130711
  2. OMEPRAZOLE [Concomitant]
  3. GALANTAMINE [Concomitant]
  4. LOVASTATIN [Concomitant]
  5. CARDIZEM [Concomitant]
  6. ALLERTEC [Concomitant]
  7. AMIODARONE [Concomitant]
  8. METOPROLOL [Concomitant]
  9. NORCO [Concomitant]
  10. TYLENOL [Concomitant]
  11. ASPIRIN [Concomitant]

REACTIONS (16)
  - Procedural vomiting [None]
  - Hippus [None]
  - Haemorrhage [None]
  - Nausea [None]
  - Haematemesis [None]
  - Circulatory collapse [None]
  - Myocardial infarction [None]
  - Pneumonia aspiration [None]
  - Arrhythmia [None]
  - Joint injury [None]
  - Fall [None]
  - Loss of consciousness [None]
  - Contusion [None]
  - Contusion [None]
  - Arthralgia [None]
  - Back pain [None]
